FAERS Safety Report 16153720 (Version 1)
Quarter: 2019Q2

REPORT INFORMATION
  Report Type: Spontaneous
  Country: FI (occurrence: FI)
  Receive Date: 20190403
  Receipt Date: 20190403
  Transmission Date: 20190711
  Serious: Yes (Other)
  Sender: FDA-Public Use
  Company Number: FI-SA-2019SA085721

PATIENT
  Age: 59 Year
  Sex: Female

DRUGS (3)
  1. PRIMASPAN [Concomitant]
     Active Substance: ASPIRIN
     Indication: PULMONARY EMBOLISM
     Dosage: 100 MG, QD
     Route: 048
     Dates: start: 20160629
  2. ARAVA [Suspect]
     Active Substance: LEFLUNOMIDE
     Indication: SPONDYLOARTHROPATHY
     Dosage: 20 MG, QD
     Route: 048
     Dates: start: 20181203, end: 20190110
  3. ATACAND PLUS [Concomitant]
     Active Substance: CANDESARTAN CILEXETIL\HYDROCHLOROTHIAZIDE
     Indication: HYPERTENSION
     Dosage: 1 DF, QD
     Route: 048
     Dates: start: 20161220

REACTIONS (11)
  - Emphysema [Recovered/Resolved]
  - White blood cell count increased [Recovered/Resolved]
  - Dyspnoea [Recovered/Resolved]
  - Hypersensitivity pneumonitis [Recovered/Resolved]
  - Rhinitis [Recovered/Resolved]
  - Eosinophilia [Recovered/Resolved]
  - Lymphocytosis [Recovered/Resolved]
  - Lung infiltration [Recovered/Resolved]
  - C-reactive protein increased [Recovered/Resolved]
  - Pneumocystis jirovecii infection [Recovered/Resolved]
  - Pyrexia [Recovered/Resolved]

NARRATIVE: CASE EVENT DATE: 20190110
